FAERS Safety Report 8152329-1 (Version None)
Quarter: 2012Q1

REPORT INFORMATION
  Report Type: 
  Country: None (occurrence: None)
  Receive Date: 20120214
  Receipt Date: 20120131
  Transmission Date: 20120608
  Serious: Yes (Other)
  Sender: FDA-Public Use
  Company Number: CA-1189765

PATIENT
  Age: 54 Year
  Sex: Female

DRUGS (9)
  1. FLUORESCEIN [Concomitant]
  2. NAPROXIN [Concomitant]
  3. ALCAINE [Suspect]
     Indication: INTRAOCULAR PRESSURE TEST
     Dosage: (1 GTT TOTAL OU OPHTHALMIC)
     Route: 047
     Dates: start: 20111207, end: 20111207
  4. RATIO-MELOXICAM [Concomitant]
  5. SYNTHROID [Concomitant]
  6. VENLAFAXINE [Concomitant]
  7. NEXIUM [Concomitant]
  8. PHENOBARBITAL TAB [Concomitant]
  9. DILANTIN [Concomitant]

REACTIONS (4)
  - SYNCOPE [None]
  - ASTHENIA [None]
  - FATIGUE [None]
  - CONVULSION [None]
